FAERS Safety Report 5309945-1 (Version None)
Quarter: 2007Q2

REPORT INFORMATION
  Report Type: 
  Country: None (occurrence: None)
  Receive Date: 20070427
  Receipt Date: 20070418
  Transmission Date: 20071010
  Serious: Yes (Other)
  Sender: FDA-Public Use
  Company Number: US-ELI_LILLY_AND_COMPANY-US200704003933

PATIENT
  Sex: Female

DRUGS (1)
  1. FORTEO [Suspect]
     Dosage: UNK D/F, UNKNOWN
     Dates: start: 20061101

REACTIONS (2)
  - FEMUR FRACTURE [None]
  - MUSCULAR WEAKNESS [None]
